FAERS Safety Report 23042467 (Version 1)
Quarter: 2023Q4

REPORT INFORMATION
  Report Type: Spontaneous
  Country: CA (occurrence: CA)
  Receive Date: 20231008
  Receipt Date: 20231008
  Transmission Date: 20240110
  Serious: Yes (Other)
  Sender: FDA-Public Use
  Company Number: CA-ABBVIE-5369059

PATIENT
  Sex: Male

DRUGS (10)
  1. RINVOQ [Suspect]
     Active Substance: UPADACITINIB
     Indication: Dermatitis atopic
     Route: 048
     Dates: start: 202203, end: 202210
  2. SINEQUAN [Concomitant]
     Active Substance: DOXEPIN HYDROCHLORIDE
     Indication: Pruritus
     Route: 048
     Dates: end: 202302
  3. CETIRIZINE HYDROCHLORIDE [Concomitant]
     Active Substance: CETIRIZINE HYDROCHLORIDE
     Indication: Pruritus
     Route: 048
     Dates: end: 202309
  4. APREPITANT [Concomitant]
     Active Substance: APREPITANT
     Indication: Pruritus
     Dosage: 125 MG-80 MG
     Route: 048
     Dates: start: 202302, end: 202309
  5. FOLIC ACID [Concomitant]
     Active Substance: FOLIC ACID
     Indication: Vitamin supplementation
     Dosage: FORM STRENGTH: 5MG
     Route: 048
     Dates: start: 202307
  6. PREDNISONE [Concomitant]
     Active Substance: PREDNISONE
     Indication: Product used for unknown indication
     Route: 048
     Dates: start: 202203, end: 202301
  7. PREDNISONE [Concomitant]
     Active Substance: PREDNISONE
     Indication: Product used for unknown indication
     Route: 048
     Dates: start: 202301
  8. HYDROXYZINE [Concomitant]
     Active Substance: HYDROXYZINE HYDROCHLORIDE
     Indication: Pruritus
     Dosage: TIME INTERVAL: 0.33333333 DAYS
     Route: 048
  9. LYRICA [Concomitant]
     Active Substance: PREGABALIN
     Indication: Pruritus
     Dates: start: 20230421
  10. PANTOPRAZOLE [Concomitant]
     Active Substance: PANTOPRAZOLE
     Indication: Product used for unknown indication
     Route: 048
     Dates: end: 202308

REACTIONS (5)
  - Cutaneous T-cell lymphoma [Not Recovered/Not Resolved]
  - Therapeutic product effect incomplete [Unknown]
  - Skin injury [Unknown]
  - Cutaneous T-cell lymphoma [Not Recovered/Not Resolved]
  - Impetigo [Unknown]

NARRATIVE: CASE EVENT DATE: 20220501
